FAERS Safety Report 5570087-1 (Version None)
Quarter: 2007Q4

REPORT INFORMATION
  Report Type: 
  Country: None (occurrence: None)
  Receive Date: 20071218
  Receipt Date: 20071203
  Transmission Date: 20080405
  Serious: Yes (Death, Other)
  Sender: FDA-Public Use
  Company Number: 2007P1000711

PATIENT
  Age: 17 Year
  Sex: Male

DRUGS (2)
  1. BUSULFAN (BUSULFAN) [Suspect]
     Indication: STEM CELL TRANSPLANT
     Dosage: 172 MG;QD;IV
     Route: 042
     Dates: start: 20070818, end: 20070819
  2. FLUDARABINE PHOSPAHATE [Concomitant]

REACTIONS (7)
  - BLOOD PRESSURE DECREASED [None]
  - HEPATIC FAILURE [None]
  - METABOLIC ACIDOSIS [None]
  - STAPHYLOCOCCAL SEPSIS [None]
  - STOMATITIS [None]
  - THROMBOTIC MICROANGIOPATHY [None]
  - VENOOCCLUSIVE DISEASE [None]
